FAERS Safety Report 6424492-1 (Version None)
Quarter: 2009Q4

REPORT INFORMATION
  Report Type: 
  Country: None (occurrence: None)
  Receive Date: 20091103
  Receipt Date: 20091026
  Transmission Date: 20100525
  Serious: Yes (Other)
  Sender: FDA-Public Use
  Company Number: US-ASTRAZENECA-2009SE22793

PATIENT

DRUGS (2)
  1. BUPIVACAINE [Suspect]
     Route: 008
  2. MORPHINE [Suspect]
     Route: 008

REACTIONS (3)
  - DRUG DISPENSING ERROR [None]
  - OXYGEN SATURATION [None]
  - RESPIRATORY DEPRESSION [None]
